FAERS Safety Report 16531204 (Version 2)
Quarter: 2019Q3

REPORT INFORMATION
  Report Type: Spontaneous
  Country: KR (occurrence: KR)
  Receive Date: 20190705
  Receipt Date: 20190705
  Transmission Date: 20191004
  Serious: Yes (Other)
  Sender: FDA-Public Use
  Company Number: PHHY2019KR148747

PATIENT
  Age: 60 Year
  Sex: Female

DRUGS (3)
  1. CICLOSPORIN [Suspect]
     Active Substance: CYCLOSPORINE
     Indication: ACQUIRED AMEGAKARYOCYTIC THROMBOCYTOPENIA
     Dosage: 200 MG, QD
     Route: 048
  2. PREDNISOLONE. [Concomitant]
     Active Substance: PREDNISOLONE
     Dosage: FROM DAY 30 AFTER ADMINISTRATION, THE DOSE OF PREDNISOLONE WAS REDUCED
     Route: 048
  3. PREDNISOLONE. [Concomitant]
     Active Substance: PREDNISOLONE
     Indication: ACQUIRED AMEGAKARYOCYTIC THROMBOCYTOPENIA
     Dosage: FROM HD 17 TO HD 30
     Route: 048

REACTIONS (3)
  - Neutropenia [Recovered/Resolved]
  - Azotaemia [Recovered/Resolved]
  - Product use in unapproved indication [Unknown]
